FAERS Safety Report 7457461-3 (Version None)
Quarter: 2011Q2

REPORT INFORMATION
  Report Type: 
  Country: None (occurrence: None)
  Receive Date: 20110504
  Receipt Date: 20110422
  Transmission Date: 20111010
  Serious: Yes (Hospitalization)
  Sender: FDA-Public Use
  Company Number: US-EISAI INC-E7389-01226-CLI-US

PATIENT
  Sex: Female

DRUGS (2)
  1. E7389 (BOLD) [Suspect]
     Route: 041
     Dates: start: 20101101, end: 20110302
  2. TARCEVA [Suspect]
     Route: 048
     Dates: start: 20101102

REACTIONS (1)
  - DEHYDRATION [None]
